APPROVED DRUG PRODUCT: ALBENZA
Active Ingredient: ALBENDAZOLE
Strength: 200MG **Federal Register determination that product was not discontinued or withdrawn for safety or effectiveness reasons**
Dosage Form/Route: TABLET;ORAL
Application: N020666 | Product #001
Applicant: IMPAX LABORATORIES INC
Approved: Jun 11, 1996 | RLD: Yes | RS: No | Type: DISCN